FAERS Safety Report 5957152-1 (Version None)
Quarter: 2008Q4

REPORT INFORMATION
  Report Type: 
  Country: None (occurrence: None)
  Receive Date: 20081117
  Receipt Date: 20081117
  Transmission Date: 20090506
  Serious: Yes (Hospitalization)
  Sender: FDA-Public Use
  Company Number: None

PATIENT
  Age: 80 Year
  Sex: Male
  Weight: 97.0698 kg

DRUGS (1)
  1. ZOLEDONIC ACID [Suspect]
     Indication: PROSTATE CANCER
     Dosage: 3.5MG ONCE IV
     Route: 042
     Dates: start: 20071217, end: 20071217

REACTIONS (4)
  - FALL [None]
  - FEMORAL NECK FRACTURE [None]
  - HIP FRACTURE [None]
  - OSTEOPOROSIS [None]
